FAERS Safety Report 14987132 (Version 1)
Quarter: 2018Q2

REPORT INFORMATION
  Report Type: Spontaneous
  Country: FR (occurrence: FR)
  Receive Date: 20180608
  Receipt Date: 20180608
  Transmission Date: 20180711
  Serious: Yes (Hospitalization, Other)
  Sender: FDA-Public Use
  Company Number: FR-CONCORDIA PHARMACEUTICALS INC.-GSH201806-001969

PATIENT
  Age: 59 Year
  Sex: Female

DRUGS (7)
  1. PLAQUENIL [Suspect]
     Active Substance: HYDROXYCHLOROQUINE SULFATE
     Indication: SYSTEMIC LUPUS ERYTHEMATOSUS
     Route: 065
     Dates: start: 2003
  2. ISOPTINE [Concomitant]
     Active Substance: VERAPAMIL HYDROCHLORIDE
  3. TOPALGIC [Concomitant]
  4. PREDNISONE. [Concomitant]
     Active Substance: PREDNISONE
  5. CORTANCYL [Concomitant]
     Active Substance: PREDNISONE
  6. FOLIC ACID. [Concomitant]
     Active Substance: FOLIC ACID
  7. VITAMINE D [Concomitant]

REACTIONS (7)
  - Coma [Unknown]
  - Cerebrovascular accident [Unknown]
  - Lung neoplasm malignant [Unknown]
  - Feeling jittery [Unknown]
  - Visual acuity reduced [Unknown]
  - Herpes zoster [Unknown]
  - Heart rate increased [Unknown]

NARRATIVE: CASE EVENT DATE: 2006
